FAERS Safety Report 6618429-X (Version None)
Quarter: 2010Q1

REPORT INFORMATION
  Report Type: 
  Country: None (occurrence: None)
  Receive Date: 20100302
  Receipt Date: 20100219
  Transmission Date: 20100710
  Serious: Yes (Hospitalization)
  Sender: FDA-Public Use
  Company Number: 2010US000581

PATIENT
  Age: 64 Year
  Sex: Male

DRUGS (3)
  1. PROGRAF [Suspect]
     Indication: HEART TRANSPLANT
     Dosage: 1 MG, /D, ORAL
     Route: 048
     Dates: start: 20090101
  2. TACROLIMUS [Suspect]
     Indication: HEART TRANSPLANT
     Dosage: 1 MG, /D, ORAL
     Route: 048
     Dates: start: 20090101
  3. CELLCEPT [Concomitant]

REACTIONS (4)
  - ILEUS [None]
  - INTESTINAL OBSTRUCTION [None]
  - PRODUCT SUBSTITUTION ISSUE [None]
  - RESTLESS LEGS SYNDROME [None]
